FAERS Safety Report 6668278-1 (Version None)
Quarter: 2010Q2

REPORT INFORMATION
  Report Type: 
  Country: None (occurrence: None)
  Receive Date: 20100405
  Receipt Date: 20100405
  Transmission Date: 20101027
  Serious: Yes (Disabling, Other)
  Sender: FDA-Public Use
  Company Number: None

PATIENT
  Age: 64 Year
  Sex: Female
  Weight: 44.1 kg

DRUGS (3)
  1. LIPITOR [Suspect]
     Indication: BLOOD CHOLESTEROL INCREASED
     Dosage: 20 MG ONCE PER DAY ORAL
     Route: 048
     Dates: start: 20070101, end: 20080201
  2. SIMVASTATIN [Suspect]
     Indication: BLOOD CHOLESTEROL INCREASED
     Dosage: 40 MG ONCE PER DAY ORAL
     Route: 048
     Dates: start: 20080501, end: 20080901
  3. CRESTOR [Suspect]

REACTIONS (10)
  - ABNORMAL LOSS OF WEIGHT [None]
  - AMNESIA [None]
  - DIARRHOEA [None]
  - HYPERHIDROSIS [None]
  - MALABSORPTION [None]
  - MUSCLE FATIGUE [None]
  - MUSCLE TWITCHING [None]
  - NEUROPATHY PERIPHERAL [None]
  - NIGHT SWEATS [None]
  - PAIN [None]
